FAERS Safety Report 9497199 (Version 1)
Quarter: 2013Q3

REPORT INFORMATION
  Report Type: Spontaneous
  Country: US (occurrence: None)
  Receive Date: 20130903
  Receipt Date: 20130903
  Transmission Date: 20140515
  Serious: Yes (Hospitalization)
  Sender: FDA-Public Use
  Company Number: None

PATIENT
  Age: 71 Year
  Sex: Female
  Weight: 68.04 kg

DRUGS (2)
  1. PROLENSA [Suspect]
     Indication: CATARACT
     Dates: start: 20130901, end: 20130901
  2. BESIVANCE [Suspect]
     Indication: CATARACT OPERATION
     Dates: start: 20130901, end: 20130901

REACTIONS (4)
  - Hypersensitivity [None]
  - Dyspnoea [None]
  - Heart rate increased [None]
  - Blood pressure increased [None]
